FAERS Safety Report 9908758 (Version 1)
Quarter: 2014Q1

REPORT INFORMATION
  Report Type: Spontaneous
  Country: US (occurrence: US)
  Receive Date: 20140219
  Receipt Date: 20140219
  Transmission Date: 20141002
  Serious: No
  Sender: FDA-Public Use
  Company Number: US-PFIZER INC-2014043473

PATIENT
  Age: 16 Year
  Sex: Male

DRUGS (1)
  1. GENOTROPIN [Suspect]
     Indication: DWARFISM
     Dosage: 3 MG, DAILY
     Route: 058
     Dates: start: 201402

REACTIONS (1)
  - Headache [Recovering/Resolving]
